FAERS Safety Report 4606809-3 (Version None)
Quarter: 2005Q1

REPORT INFORMATION
  Report Type: 
  Country: None (occurrence: None)
  Receive Date: 20050310
  Receipt Date: 20050226
  Transmission Date: 20050727
  Serious: Yes (Other)
  Sender: FDA-Public Use
  Company Number: 2005022478

PATIENT
  Age: 73 Year
  Sex: Male
  Weight: 145.151 kg

DRUGS (12)
  1. NEURONTIN [Suspect]
     Indication: DIABETIC NEUROPATHY
     Dosage: ORAL
     Route: 048
     Dates: start: 20010101
  2. NEURONTIN [Suspect]
     Indication: NEUROPATHIC PAIN
     Dosage: ORAL
     Route: 048
     Dates: start: 20010101
  3. NEURONTIN [Suspect]
     Indication: PAIN IN EXTREMITY
     Dosage: ORAL
     Route: 048
     Dates: start: 20010101
  4. AMITRIPTYLINE HYDROCHLORIDE [Suspect]
     Indication: DIABETIC NEUROPATHY
  5. GLIPIZIDE [Concomitant]
  6. AMIODARONE HCL [Concomitant]
  7. ASPIRIN [Concomitant]
  8. CITALOPRAM HYDROBROMIDE [Concomitant]
  9. SIMVASTATIN [Concomitant]
  10. ZOLPIDEM TARTRATE [Concomitant]
  11. FUROSEMIDE [Concomitant]
  12. POTASSIUM ACETATE [Concomitant]

REACTIONS (5)
  - DRUG INEFFECTIVE [None]
  - DYSPNOEA [None]
  - PAIN IN EXTREMITY [None]
  - SURGICAL PROCEDURE REPEATED [None]
  - TRIPLE VESSEL BYPASS GRAFT [None]
